FAERS Safety Report 5821660-4 (Version None)
Quarter: 2008Q3

REPORT INFORMATION
  Report Type: 
  Country: None (occurrence: None)
  Receive Date: 20080724
  Receipt Date: 20080718
  Transmission Date: 20090109
  Serious: Yes (Disabling, Other)
  Sender: FDA-Public Use
  Company Number: US-BAXTER-2008BH002562

PATIENT
  Age: 60 Year
  Sex: Female
  Weight: 56 kg

DRUGS (7)
  1. HEPARIN SODIUM INJECTION [Suspect]
     Indication: CATHETERISATION CARDIAC
     Dosage: DOSE UNIT:UNKNOWN
     Route: 040
     Dates: start: 20080113, end: 20080113
  2. HEPARIN SODIUM INJECTION [Suspect]
     Dosage: DOSE UNIT:UNKNOWN
     Route: 040
     Dates: start: 20080113, end: 20080113
  3. HEPARIN SODIUM INJECTION [Suspect]
     Dosage: DOSE UNIT:UNKNOWN
     Route: 041
     Dates: start: 20080113
  4. HEPARIN SODIUM INJECTION [Suspect]
     Dosage: DOSE UNIT:UNKNOWN
     Route: 041
     Dates: start: 20080113
  5. LIPITOR [Concomitant]
     Indication: DRUG USE FOR UNKNOWN INDICATION
     Dosage: DOSE UNIT:UNKNOWN
     Route: 048
  6. ASPIRIN [Concomitant]
     Indication: DRUG USE FOR UNKNOWN INDICATION
     Dosage: DOSE UNIT:UNKNOWN
     Route: 048
  7. PLAVIX [Concomitant]
     Indication: DRUG USE FOR UNKNOWN INDICATION
     Dosage: DOSE UNIT:UNKNOWN
     Route: 048

REACTIONS (1)
  - DRUG INEFFECTIVE [None]
